FAERS Safety Report 16109998 (Version 3)
Quarter: 2019Q3

REPORT INFORMATION
  Report Type: Spontaneous
  Country: JP (occurrence: JP)
  Receive Date: 20190325
  Receipt Date: 20190705
  Transmission Date: 20191004
  Serious: Yes (Other)
  Sender: FDA-Public Use
  Company Number: JP-ROCHE-2285818

PATIENT
  Age: 10 Year
  Sex: Female

DRUGS (1)
  1. RITUXAN [Suspect]
     Active Substance: RITUXIMAB
     Indication: GLOMERULONEPHRITIS RAPIDLY PROGRESSIVE
     Dosage: APPROX. 50MG EQUIVALENT TO ONE-TENTH OF THE SCHEDULED DOSE 375MG/M2
     Route: 041

REACTIONS (3)
  - Infusion related reaction [Recovered/Resolved]
  - Intentional product use issue [Unknown]
  - Off label use [Unknown]
